FAERS Safety Report 15016089 (Version 2)
Quarter: 2018Q2

REPORT INFORMATION
  Report Type: Report from Study
  Country: CN (occurrence: CN)
  Receive Date: 20180615
  Receipt Date: 20180618
  Transmission Date: 20180711
  Serious: Yes (Death, Hospitalization)
  Sender: FDA-Public Use
  Company Number: CN-JNJFOC-20180600154

PATIENT
  Age: 29 Year
  Sex: Male
  Weight: 45 kg

DRUGS (9)
  1. LINEZOLID. [Suspect]
     Active Substance: LINEZOLID
     Indication: PULMONARY TUBERCULOSIS
     Route: 065
  2. SIRTURO [Suspect]
     Active Substance: BEDAQUILINE FUMARATE
     Indication: PULMONARY TUBERCULOSIS
     Route: 048
     Dates: start: 2018
  3. SIRTURO [Suspect]
     Active Substance: BEDAQUILINE FUMARATE
     Indication: PULMONARY TUBERCULOSIS
     Route: 048
     Dates: start: 20180327
  4. REACTINE (CETIRIZINE HYDROCHLORIDE) [Suspect]
     Active Substance: CETIRIZINE HYDROCHLORIDE
     Indication: PULMONARY TUBERCULOSIS
     Route: 065
  5. CLOFAZIMINE [Suspect]
     Active Substance: CLOFAZIMINE
     Indication: PULMONARY TUBERCULOSIS
     Route: 065
  6. CAPREOMYCIN [Suspect]
     Active Substance: CAPREOMYCIN
     Indication: PULMONARY TUBERCULOSIS
     Route: 065
  7. LEVOFLOXACIN. [Suspect]
     Active Substance: LEVOFLOXACIN
     Indication: PULMONARY TUBERCULOSIS
     Route: 065
  8. PROTHIAZIDE [Suspect]
     Active Substance: CYCLOPENTHIAZIDE
     Indication: PULMONARY TUBERCULOSIS
     Route: 065
  9. CYCLOSERINE. [Suspect]
     Active Substance: CYCLOSERINE
     Indication: PULMONARY TUBERCULOSIS
     Route: 065

REACTIONS (4)
  - Death [Fatal]
  - Cardiac failure [Unknown]
  - Mental disorder [Recovered/Resolved with Sequelae]
  - Insomnia [Recovered/Resolved]

NARRATIVE: CASE EVENT DATE: 20180530
